FAERS Safety Report 26134589 (Version 2)
Quarter: 2025Q4

REPORT INFORMATION
  Report Type: Spontaneous
  Country: US (occurrence: US)
  Receive Date: 20251209
  Receipt Date: 20251219
  Transmission Date: 20260118
  Serious: Yes (Life-Threatening, Hospitalization, Other)
  Sender: AUROBINDO
  Company Number: US-MLMSERVICE-20251120-PI720406-00268-1

PATIENT
  Age: 64 Year
  Sex: Female
  Weight: 130.1 kg

DRUGS (9)
  1. PRAMIPEXOLE [Suspect]
     Active Substance: PRAMIPEXOLE
     Indication: Restless legs syndrome
     Dosage: 0.5 MILLIGRAM, 3 TIMES A DAY
     Route: 061
     Dates: start: 201906, end: 201912
  2. PRAMIPEXOLE [Suspect]
     Active Substance: PRAMIPEXOLE
     Dosage: 1.5 MILLIGRAM, 3 TIMES A DAY
     Route: 061
     Dates: start: 201912
  3. PRAMIPEXOLE [Suspect]
     Active Substance: PRAMIPEXOLE
     Dosage: 1.5 MILLIGRAM, 3 TIMES A DAY
     Route: 061
     Dates: start: 201906, end: 202409
  4. PRAMIPEXOLE [Suspect]
     Active Substance: PRAMIPEXOLE
     Dosage: 3 MILLIGRAM, 3 TIMES A DAY
     Route: 061
     Dates: start: 202409, end: 2025
  5. BUPROPION [Concomitant]
     Active Substance: BUPROPION
     Indication: Product used for unknown indication
     Dosage: 450 MILLIGRAM, ONCE A DAY
     Route: 065
  6. BUSPIRONE [Concomitant]
     Active Substance: BUSPIRONE HYDROCHLORIDE
     Indication: Product used for unknown indication
     Dosage: 15 MILLIGRAM, 3 TIMES A DAY
     Route: 065
  7. GABAPENTIN [Concomitant]
     Active Substance: GABAPENTIN
     Indication: Product used for unknown indication
     Dosage: 600 MILLIGRAM, 3 TIMES A DAY
     Route: 065
  8. TOPIRAMATE [Concomitant]
     Active Substance: TOPIRAMATE
     Indication: Product used for unknown indication
     Dosage: 100 MILLIGRAM, TWO TIMES A DAY
     Route: 065
  9. VENLAFAXINE [Concomitant]
     Active Substance: VENLAFAXINE HYDROCHLORIDE
     Indication: Product used for unknown indication
     Dosage: 300 MILLIGRAM, ONCE A DAY
     Route: 065

REACTIONS (9)
  - Restless leg augmentation syndrome [Recovered/Resolved]
  - Hallucination, tactile [Recovered/Resolved]
  - Dermatillomania [Recovered/Resolved]
  - Hallucination, auditory [Recovered/Resolved]
  - Impulse-control disorder [Recovered/Resolved]
  - Major depression [Recovered/Resolved]
  - Suicidal ideation [Recovered/Resolved]
  - Depression [Recovered/Resolved]
  - Overdose [Recovered/Resolved]

NARRATIVE: CASE EVENT DATE: 20190101
